FAERS Safety Report 5733289-7 (Version None)
Quarter: 2008Q2

REPORT INFORMATION
  Report Type: 
  Country: None (occurrence: None)
  Receive Date: 20080509
  Receipt Date: 20080429
  Transmission Date: 20081010
  Serious: Yes (Hospitalization)
  Sender: FDA-Public Use
  Company Number: B0519419A

PATIENT
  Age: 36 Year
  Sex: Female

DRUGS (6)
  1. LAMOTRIGINE [Suspect]
     Indication: ANXIETY
     Route: 065
  2. WELLBUTRIN [Suspect]
     Route: 065
  3. PENICILLIN [Suspect]
     Route: 065
  4. SULFA [Suspect]
     Route: 065
  5. SYNTHROID [Concomitant]
  6. ORTHO TRI-CYCLEN [Concomitant]

REACTIONS (12)
  - CHILLS [None]
  - HEADACHE [None]
  - MENINGITIS ASEPTIC [None]
  - MENTAL STATUS CHANGES [None]
  - MUSCULOSKELETAL STIFFNESS [None]
  - NAUSEA [None]
  - NUCHAL RIGIDITY [None]
  - PHOTOPHOBIA [None]
  - PYREXIA [None]
  - RASH [None]
  - RASH MACULO-PAPULAR [None]
  - VOMITING [None]
